FAERS Safety Report 5590708-7 (Version None)
Quarter: 2008Q1

REPORT INFORMATION
  Report Type: 
  Country: None (occurrence: None)
  Receive Date: 20080110
  Receipt Date: 20071228
  Transmission Date: 20080703
  Serious: Yes (Hospitalization, Other)
  Sender: FDA-Public Use
  Company Number: 2008BI000203

PATIENT
  Age: 34 Year
  Sex: Female

DRUGS (1)
  1. AVONEX [Suspect]
     Indication: MULTIPLE SCLEROSIS
     Dosage: 30 UG; QW; IM
     Route: 030
     Dates: start: 20071120

REACTIONS (5)
  - HORMONE LEVEL ABNORMAL [None]
  - HYSTERECTOMY [None]
  - ILL-DEFINED DISORDER [None]
  - MULTIPLE SCLEROSIS RELAPSE [None]
  - STRESS [None]
